FAERS Safety Report 5900675-1 (Version None)
Quarter: 2008Q3

REPORT INFORMATION
  Report Type: 
  Country: None (occurrence: None)
  Receive Date: 20080926
  Receipt Date: 20080915
  Transmission Date: 20090109
  Serious: Yes (Other)
  Sender: FDA-Public Use
  Company Number: US-PFIZER INC-2008079151

PATIENT
  Sex: Male
  Weight: 70.8 kg

DRUGS (4)
  1. CHANTIX [Suspect]
     Indication: SMOKING CESSATION THERAPY
     Dates: start: 20060201
  2. ZOCOR [Concomitant]
  3. KLONOPIN [Concomitant]
  4. PRILOSEC [Concomitant]

REACTIONS (3)
  - ARRHYTHMIA [None]
  - ATRIAL TACHYCARDIA [None]
  - VENTRICULAR EXTRASYSTOLES [None]
